FAERS Safety Report 14288728 (Version 3)
Quarter: 2018Q1

REPORT INFORMATION
  Report Type: Spontaneous
  Country: CN (occurrence: CN)
  Receive Date: 20171214
  Receipt Date: 20180116
  Transmission Date: 20180509
  Serious: Yes (Other)
  Sender: FDA-Public Use
  Company Number: CN-GLAXOSMITHKLINE-CN2017GSK182888

PATIENT
  Age: 7 Month
  Sex: Female

DRUGS (2)
  1. MUPIROCIN. [Suspect]
     Active Substance: MUPIROCIN
     Route: 061
  2. ENGERIX-B [Suspect]
     Active Substance: HEPATITIS B VIRUS SUBTYPE ADW2 HBSAG SURFACE PROTEIN ANTIGEN
     Indication: PROPHYLAXIS
     Dosage: .5 ML
     Route: 030
     Dates: start: 20171017, end: 20171017

REACTIONS (14)
  - Herpes virus infection [Recovering/Resolving]
  - Erythema multiforme [Recovering/Resolving]
  - Rash papular [Recovering/Resolving]
  - Eczema infected [Not Recovered/Not Resolved]
  - Scratch [Recovering/Resolving]
  - Pigmentation disorder [Not Recovered/Not Resolved]
  - Injection site infection [Recovering/Resolving]
  - Scab [Not Recovered/Not Resolved]
  - Injection site swelling [Recovering/Resolving]
  - Infection [Recovering/Resolving]
  - Injection site erythema [Unknown]
  - Injection site discharge [Recovering/Resolving]
  - Dysphoria [Recovering/Resolving]
  - Skin exfoliation [Unknown]

NARRATIVE: CASE EVENT DATE: 20171020
